FAERS Safety Report 5030203-7 (Version None)
Quarter: 2006Q2

REPORT INFORMATION
  Report Type: 
  Country: None (occurrence: None)
  Receive Date: 20060615
  Receipt Date: 20060530
  Transmission Date: 20061013
  Serious: Yes (Hospitalization)
  Sender: FDA-Public Use
  Company Number: US200606000700

PATIENT
  Age: 79 Year
  Sex: Female

DRUGS (5)
  1. FORTEO [Suspect]
     Dates: start: 20050101
  2. FORTEO [Concomitant]
  3. CELEBREX [Concomitant]
  4. ACETAMINOPHEN [Concomitant]
  5. OSTEO BI-FLEX (CHONDROITIN SULFATE, GLUCOSAMINE HYDROCHLORIDE) [Concomitant]

REACTIONS (2)
  - ASTHENIA [None]
  - EMPHYSEMA [None]
